FAERS Safety Report 14541649 (Version 2)
Quarter: 2018Q3

REPORT INFORMATION
  Report Type: Report from Study
  Country: US (occurrence: US)
  Receive Date: 20180216
  Receipt Date: 20180830
  Transmission Date: 20181010
  Serious: Yes (Other)
  Sender: FDA-Public Use
  Company Number: US-AMGEN-USASL2017183555

PATIENT
  Age: 67 Year
  Sex: Female

DRUGS (3)
  1. PROLIA [Suspect]
     Active Substance: DENOSUMAB
     Indication: PRODUCT USED FOR UNKNOWN INDICATION
     Dosage: UNK UNK, Q6MO
     Route: 065
     Dates: end: 201708
  2. REPATHA [Suspect]
     Active Substance: EVOLOCUMAB
     Indication: HYPERCHOLESTEROLAEMIA
     Dosage: 140 MG, Q2WK
     Route: 065
     Dates: start: 201710
  3. REPATHA [Suspect]
     Active Substance: EVOLOCUMAB
     Indication: HYPERLIPIDAEMIA
     Dosage: 420 MG, QMO
     Route: 065

REACTIONS (19)
  - Tooth fracture [Unknown]
  - Device breakage [Unknown]
  - Back pain [Not Recovered/Not Resolved]
  - Bone disorder [Unknown]
  - Fatigue [Recovering/Resolving]
  - Painful respiration [Unknown]
  - Injection site pain [Unknown]
  - Oral herpes [Recovering/Resolving]
  - Pain in extremity [Unknown]
  - Memory impairment [Unknown]
  - Carpal tunnel decompression [Unknown]
  - Haemoptysis [Recovering/Resolving]
  - Groin pain [Unknown]
  - Nasopharyngitis [Recovering/Resolving]
  - Musculoskeletal pain [Unknown]
  - Muscle disorder [Unknown]
  - Tenoplasty [Unknown]
  - Neck pain [Unknown]
  - Arthralgia [Not Recovered/Not Resolved]

NARRATIVE: CASE EVENT DATE: 201712
